FAERS Safety Report 8806450 (Version 2)
Quarter: 2012Q4

REPORT INFORMATION
  Report Type: Spontaneous
  Country: JP (occurrence: None)
  Receive Date: 20120919
  Receipt Date: 20121002
  Transmission Date: 20130627
  Serious: Yes (Hospitalization)
  Sender: FDA-Public Use
  Company Number: TPA2012A06663

PATIENT
  Age: 66 Year
  Sex: Male

DRUGS (3)
  1. FEBURIC (FEBUXOSTAT) [Suspect]
     Indication: HYPERURICAEMIA
     Route: 048
     Dates: start: 20120829, end: 20120903
  2. DIAMOX [Suspect]
     Route: 048
     Dates: start: 20120831, end: 20120902
  3. SWORD (PRULIFLOXACIN) [Concomitant]

REACTIONS (1)
  - Dyskinesia [None]
